FAERS Safety Report 24661333 (Version 2)
Quarter: 2024Q4

REPORT INFORMATION
  Report Type: Report from Study
  Country: ES (occurrence: ES)
  Receive Date: 20241125
  Receipt Date: 20241231
  Transmission Date: 20250115
  Serious: Yes (Hospitalization)
  Sender: TEVA
  Company Number: None

PATIENT
  Age: 27 Year
  Sex: Male

DRUGS (4)
  1. IBUPROFEN [Suspect]
     Active Substance: IBUPROFEN
     Indication: Tooth extraction
     Dosage: IBUPROFEN (1769A)
     Route: 048
     Dates: start: 20240610, end: 20240611
  2. OMEPRAZOLE [Suspect]
     Active Substance: OMEPRAZOLE
     Indication: Tooth extraction
     Dosage: OMEPRAZOLE (2141A)
     Route: 048
     Dates: start: 20240610, end: 20240617
  3. AMOXICILLIN\CLAVULANIC ACID [Suspect]
     Active Substance: AMOXICILLIN\CLAVULANIC ACID
     Indication: Tooth extraction
     Dosage: AMOXICILLIN/CLAVULANIC ACID 500 MG/125 MG 12 TABLETS
     Route: 048
     Dates: start: 20240610, end: 20240617
  4. DEFLAZACORT [Suspect]
     Active Substance: DEFLAZACORT
     Indication: Tooth extraction
     Dosage: DEFLAZACORT (2546A)
     Route: 048
     Dates: start: 20240610, end: 20240616

REACTIONS (1)
  - Acute generalised exanthematous pustulosis [Recovered/Resolved]

NARRATIVE: CASE EVENT DATE: 20240617
